FAERS Safety Report 25190089 (Version 1)
Quarter: 2025Q2

REPORT INFORMATION
  Report Type: Report from Study
  Country: CA (occurrence: CA)
  Receive Date: 20250411
  Receipt Date: 20250411
  Transmission Date: 20250717
  Serious: Yes (Other)
  Sender: VERTEX
  Company Number: CA-VERTEX PHARMACEUTICALS-2025-005544

PATIENT
  Age: 10 Year
  Sex: Female
  Weight: 37 kg

DRUGS (2)
  1. TRIKAFTA [Suspect]
     Active Substance: ELEXACAFTOR\IVACAFTOR\TEZACAFTOR
     Indication: Cystic fibrosis
     Dosage: ADULT DOSE
     Route: 048
     Dates: start: 20221031
  2. TRIKAFTA [Suspect]
     Active Substance: ELEXACAFTOR\IVACAFTOR\TEZACAFTOR
     Dosage: SWITCHED AM AND PM DOSE
     Route: 048

REACTIONS (4)
  - Behaviour disorder [Not Recovered/Not Resolved]
  - Infective pulmonary exacerbation of cystic fibrosis [Recovered/Resolved]
  - Disturbance in attention [Unknown]
  - Flatulence [Unknown]

NARRATIVE: CASE EVENT DATE: 20250321
